FAERS Safety Report 4617495-0 (Version None)
Quarter: 2005Q1

REPORT INFORMATION
  Report Type: 
  Country: None (occurrence: None)
  Receive Date: 20050324
  Receipt Date: 20050317
  Transmission Date: 20050727
  Serious: Yes (Hospitalization, Other)
  Sender: FDA-Public Use
  Company Number: US-JNJFOC-20050300153

PATIENT
  Sex: Male
  Weight: 64.41 kg

DRUGS (2)
  1. DURAGESIC-100 [Suspect]
     Indication: INTENTIONAL MISUSE
     Route: 049
  2. DURAGESIC-100 [Suspect]
     Route: 049

REACTIONS (4)
  - DRUG ABUSER [None]
  - INTENTIONAL MISUSE [None]
  - LOSS OF CONSCIOUSNESS [None]
  - OVERDOSE [None]
